FAERS Safety Report 8444688-7 (Version None)
Quarter: 2012Q2

REPORT INFORMATION
  Report Type: 
  Country: None (occurrence: None)
  Receive Date: 20120618
  Receipt Date: 20120607
  Transmission Date: 20120825
  Serious: Yes (Death, Hospitalization, Other)
  Sender: FDA-Public Use
  Company Number: JP-CELGENEUS-087-50794-12061976

PATIENT
  Sex: Male
  Weight: 54 kg

DRUGS (26)
  1. ACTOS [Concomitant]
     Route: 065
  2. CEFEPIME [Concomitant]
     Route: 065
     Dates: start: 20120202, end: 20120208
  3. VIDAZA [Suspect]
     Dosage: 75 MILLIGRAM/SQ. METER
     Route: 041
     Dates: start: 20111115, end: 20111121
  4. DIFLUCAN [Concomitant]
     Route: 065
  5. VANCOMYCIN [Concomitant]
     Route: 065
     Dates: start: 20120314, end: 20120320
  6. DORIPENEM MONOHYDRATE [Concomitant]
     Route: 065
     Dates: start: 20111216, end: 20111226
  7. DORIPENEM MONOHYDRATE [Concomitant]
     Route: 065
     Dates: start: 20120301, end: 20120312
  8. FUNGARD [Concomitant]
     Route: 065
     Dates: start: 20111207, end: 20111228
  9. LANSOPRAZOLE [Concomitant]
     Route: 065
  10. GRAN [Concomitant]
     Route: 065
     Dates: start: 20111202, end: 20111227
  11. VANCOMYCIN [Concomitant]
     Route: 065
     Dates: start: 20111211, end: 20111222
  12. COTRIM [Concomitant]
     Route: 065
  13. GRAN [Concomitant]
     Route: 065
     Dates: start: 20120229, end: 20120314
  14. MEROPENEM [Concomitant]
     Route: 065
     Dates: start: 20120314, end: 20120320
  15. LEVOFLOXACIN [Concomitant]
     Route: 065
     Dates: start: 20111227, end: 20120104
  16. LEVOFLOXACIN [Concomitant]
     Route: 065
     Dates: start: 20120312, end: 20120314
  17. AMBISOME [Concomitant]
     Route: 065
     Dates: start: 20120314, end: 20120320
  18. VIDAZA [Suspect]
     Dosage: 75 MILLIGRAM/SQ. METER
     Route: 041
     Dates: start: 20120124, end: 20120130
  19. CEFEPIME [Concomitant]
     Route: 065
     Dates: start: 20111130, end: 20111203
  20. MEROPENEM [Concomitant]
     Route: 065
     Dates: start: 20111203, end: 20111215
  21. MINOCYCLINE HCL [Concomitant]
     Route: 065
     Dates: start: 20111223, end: 20120104
  22. MINOCYCLINE HCL [Concomitant]
     Route: 065
     Dates: start: 20120301, end: 20120314
  23. MEROPENEM [Concomitant]
     Route: 065
     Dates: start: 20120223, end: 20120301
  24. AMARYL [Concomitant]
     Route: 065
  25. CEFEPIME [Concomitant]
     Route: 065
     Dates: start: 20120220, end: 20120223
  26. VFEND [Concomitant]
     Route: 065
     Dates: start: 20120305, end: 20120314

REACTIONS (3)
  - NEUTROPENIA [None]
  - FEBRILE NEUTROPENIA [None]
  - PNEUMONIA [None]
